FAERS Safety Report 4519946-9 (Version None)
Quarter: 2004Q4

REPORT INFORMATION
  Report Type: 
  Country: None (occurrence: None)
  Receive Date: 20041202
  Receipt Date: 20041202
  Transmission Date: 20050328
  Serious: Yes (Hospitalization)
  Sender: FDA-Public Use
  Company Number: None

PATIENT
  Age: 75 Year
  Sex: Female
  Weight: 46.2 kg

DRUGS (11)
  1. LIPITOR [Suspect]
     Indication: HYPERLIPIDAEMIA
     Dosage: 80 MG ONCE DAILY ORAL
     Route: 048
     Dates: start: 20040303, end: 20041021
  2. ASPIRIN [Concomitant]
  3. HYDROCHLOROTHIAZIDE [Concomitant]
  4. PREVACID [Concomitant]
  5. NORVASC [Concomitant]
  6. FLONASE [Concomitant]
  7. FOSAMAX [Concomitant]
  8. ZETIA [Concomitant]
  9. TOPROL-XL [Concomitant]
  10. AVAPRO [Concomitant]
  11. LOPID [Concomitant]

REACTIONS (1)
  - RHABDOMYOLYSIS [None]
